FAERS Safety Report 12625190 (Version 1)
Quarter: 2016Q3

REPORT INFORMATION
  Report Type: Spontaneous
  Country: US (occurrence: None)
  Receive Date: 20160804
  Receipt Date: 20160804
  Transmission Date: 20161109
  Serious: No
  Sender: FDA-Public Use
  Company Number: None

PATIENT
  Age: 60 Year
  Sex: Male

DRUGS (1)
  1. ISENTRESS [Suspect]
     Active Substance: RALTEGRAVIR POTASSIUM
     Indication: HIV INFECTION
     Dosage: 400MG 1 TAB TWICE DA ORAL
     Route: 048

REACTIONS (2)
  - Diarrhoea [None]
  - Gastroenteritis viral [None]

NARRATIVE: CASE EVENT DATE: 20160802
